FAERS Safety Report 10005927 (Version 2)
Quarter: 2014Q2

REPORT INFORMATION
  Report Type: Report from Study
  Country: GB (occurrence: GB)
  Receive Date: 20140313
  Receipt Date: 20140418
  Transmission Date: 20141212
  Serious: Yes (Hospitalization)
  Sender: FDA-Public Use
  Company Number: GB-UCBSA-114165

PATIENT
  Age: 52 Year
  Sex: Female

DRUGS (6)
  1. CIMZIA [Suspect]
     Indication: RHEUMATOID ARTHRITIS
     Dosage: 200 MG
     Route: 058
     Dates: start: 20121215
  2. METHOTREXATE [Concomitant]
     Indication: RHEUMATOID ARTHRITIS
  3. SULPHASALAZINE [Concomitant]
     Indication: RHEUMATOID ARTHRITIS
  4. LISINOPRIL [Concomitant]
     Dosage: 20MG
  5. AMLODIPINE [Concomitant]
  6. IBUPROFEN [Concomitant]

REACTIONS (1)
  - Appendicitis [Recovered/Resolved]
